FAERS Safety Report 18210442 (Version 1)
Quarter: 2020Q3

REPORT INFORMATION
  Report Type: Spontaneous
  Country: CA (occurrence: CA)
  Receive Date: 20200829
  Receipt Date: 20200829
  Transmission Date: 20201103
  Serious: Yes (Hospitalization, Other)
  Sender: FDA-Public Use
  Company Number: CA-ASTRAZENECA-2020SF08518

PATIENT
  Age: 62 Year
  Sex: Male

DRUGS (5)
  1. METOCLOPRAMIDE. [Suspect]
     Active Substance: METOCLOPRAMIDE
     Indication: MALABSORPTION
     Route: 065
  2. HALOPERIDOL DECANOATE. [Suspect]
     Active Substance: HALOPERIDOL DECANOATE
     Indication: AGITATION
     Dosage: 4.0MG UNKNOWN
     Route: 065
  3. LORAZEPAM. [Suspect]
     Active Substance: LORAZEPAM
     Indication: CLONUS
     Dosage: 5.0MG UNKNOWN
     Route: 065
  4. QUETIAPINE. [Suspect]
     Active Substance: QUETIAPINE
     Indication: AGITATION
     Route: 048
  5. MIDAZOLAM. [Suspect]
     Active Substance: MIDAZOLAM
     Indication: CLONUS
     Dosage: 8.0MG UNKNOWN
     Route: 065

REACTIONS (3)
  - Dystonia [Unknown]
  - Depressed level of consciousness [Unknown]
  - Drug ineffective [Unknown]
